FAERS Safety Report 9102913 (Version 1)
Quarter: 2013Q1

REPORT INFORMATION
  Report Type: Spontaneous
  Country: US (occurrence: US)
  Receive Date: 20130219
  Receipt Date: 20130219
  Transmission Date: 20140127
  Serious: Yes (Hospitalization, Other)
  Sender: FDA-Public Use
  Company Number: US-PFIZER INC-2013061283

PATIENT
  Sex: Female

DRUGS (4)
  1. NEURONTIN [Suspect]
     Indication: FRACTURE PAIN
     Dosage: UNK
  2. NEURONTIN [Suspect]
     Indication: TUMOUR PAIN
  3. DETROL LA [Suspect]
     Dosage: UNK
  4. ZOLOFT [Suspect]
     Dosage: UNK

REACTIONS (6)
  - Hip fracture [Unknown]
  - Fibula fracture [Unknown]
  - Neoplasm [Unknown]
  - Fall [Unknown]
  - Multiple fractures [Unknown]
  - Ovarian cyst [Unknown]
